FAERS Safety Report 7820762-0 (Version None)
Quarter: 2011Q4

REPORT INFORMATION
  Report Type: 
  Country: None (occurrence: None)
  Receive Date: 20111018
  Receipt Date: 20111004
  Transmission Date: 20120403
  Serious: Yes (Hospitalization)
  Sender: FDA-Public Use
  Company Number: US-BAYER-201035414NA

PATIENT
  Age: 24 Year
  Sex: Female
  Weight: 95.238 kg

DRUGS (3)
  1. YASMIN [Suspect]
     Indication: CONTRACEPTION
     Dosage: UNK
     Dates: start: 20050321, end: 20070820
  2. TYLENOL-500 [Concomitant]
     Dosage: UNK UNK, PRN
     Route: 048
  3. KLONOPIN [Concomitant]
     Indication: PANIC ATTACK
     Dosage: 2 MG, BID
     Route: 048
     Dates: start: 20050101, end: 20090101

REACTIONS (7)
  - CEREBROVASCULAR ACCIDENT [None]
  - NAUSEA [None]
  - PAIN IN JAW [None]
  - ANXIETY [None]
  - CHEST DISCOMFORT [None]
  - PAIN [None]
  - ACUTE MYOCARDIAL INFARCTION [None]
